FAERS Safety Report 10430329 (Version 1)
Quarter: 2014Q3

REPORT INFORMATION
  Report Type: Other
  Country: GB (occurrence: GB)
  Receive Date: 20140904
  Receipt Date: 20140904
  Transmission Date: 20150326
  Serious: Yes (Other)
  Sender: FDA-Public Use
  Company Number: GB-PERRIGO-14GB008625

PATIENT
  Age: 46 Year
  Sex: Male

DRUGS (2)
  1. NAPROXEN 250MG 16028/0144 [Suspect]
     Active Substance: NAPROXEN
     Indication: NECK PAIN
  2. NAPROXEN 250MG 16028/0144 [Suspect]
     Active Substance: NAPROXEN
     Indication: ANALGESIC THERAPY
     Dosage: 2 DF, SINGLE
     Route: 048
     Dates: start: 2013, end: 2013

REACTIONS (1)
  - Confusional state [Recovered/Resolved]

NARRATIVE: CASE EVENT DATE: 201308
